FAERS Safety Report 7028097-3 (Version None)
Quarter: 2010Q3

REPORT INFORMATION
  Report Type: 
  Country: None (occurrence: None)
  Receive Date: 20100930
  Receipt Date: 20100923
  Transmission Date: 20110219
  Serious: Yes (Hospitalization)
  Sender: FDA-Public Use
  Company Number: 2009SP017305

PATIENT
  Age: 31 Year
  Sex: Female
  Weight: 84.8226 kg

DRUGS (3)
  1. NUVARING [Suspect]
     Indication: CONTRACEPTION
     Dosage: 1 DF;
     Dates: start: 20060401, end: 20061101
  2. RESTORIL [Concomitant]
  3. TOPROL-XL [Concomitant]

REACTIONS (9)
  - ARNOLD-CHIARI MALFORMATION [None]
  - CEREBRAL VENOUS THROMBOSIS [None]
  - COAGULATION FACTOR VIII LEVEL INCREASED [None]
  - LIPOPROTEIN (A) INCREASED [None]
  - MUSCLE STRAIN [None]
  - ROAD TRAFFIC ACCIDENT [None]
  - SOFT TISSUE INJURY [None]
  - SUBARACHNOID HAEMORRHAGE [None]
  - SUBDURAL HAEMATOMA [None]
